FAERS Safety Report 7603405-0 (Version None)
Quarter: 2011Q3

REPORT INFORMATION
  Report Type: 
  Country: None (occurrence: None)
  Receive Date: 20110712
  Receipt Date: 20110630
  Transmission Date: 20111222
  Serious: Yes (Hospitalization)
  Sender: FDA-Public Use
  Company Number: JP-JNJFOC-20110301706

PATIENT
  Sex: Female
  Weight: 42 kg

DRUGS (12)
  1. NORVASC [Concomitant]
     Indication: HYPERTENSION
     Route: 048
  2. PLETAL [Concomitant]
     Indication: CEREBRAL INFARCTION
     Route: 048
  3. RIMATIL [Concomitant]
     Indication: RHEUMATOID ARTHRITIS
     Route: 048
  4. AZULFIDINE [Concomitant]
     Indication: RHEUMATOID ARTHRITIS
     Route: 048
  5. REMICADE [Suspect]
     Indication: RHEUMATOID ARTHRITIS
     Route: 042
  6. LANSOPRAZOLE [Concomitant]
     Indication: GASTROOESOPHAGEAL REFLUX DISEASE
     Route: 048
  7. ACTONEL [Concomitant]
     Indication: OSTEOPOROSIS
     Route: 048
  8. REMICADE [Suspect]
     Route: 042
     Dates: start: 20101216
  9. PREDNISOLONE [Suspect]
     Indication: RHEUMATOID ARTHRITIS
     Route: 048
  10. RHEUMATREX [Suspect]
     Indication: RHEUMATOID ARTHRITIS
     Route: 048
  11. REMICADE [Suspect]
     Route: 042
     Dates: start: 20101102
  12. CARVEDILOL [Concomitant]
     Indication: HYPERTENSION
     Route: 048

REACTIONS (2)
  - DEHYDRATION [None]
  - DISSEMINATED TUBERCULOSIS [None]
